FAERS Safety Report 5922689-8 (Version None)
Quarter: 2008Q4

REPORT INFORMATION
  Report Type: 
  Country: None (occurrence: None)
  Receive Date: 20081017
  Receipt Date: 20081007
  Transmission Date: 20090506
  Serious: Yes (Death)
  Sender: FDA-Public Use
  Company Number: FR-ELI_LILLY_AND_COMPANY-FR200810002116

PATIENT
  Sex: Male

DRUGS (2)
  1. ZYPREXA [Suspect]
  2. METHADONE HCL [Interacting]
     Route: 048

REACTIONS (3)
  - ALCOHOL ABUSE [None]
  - DEATH [None]
  - DRUG INTERACTION [None]
